FAERS Safety Report 9301577 (Version 1)
Quarter: 2012Q4

REPORT INFORMATION
  Report Type: Spontaneous
  Country: BR (occurrence: None)
  Receive Date: 20121109
  Receipt Date: 20121109
  Transmission Date: 20130627
  Serious: Yes (Other)
  Sender: FDA-Public Use
  Company Number: 2012S1000422

PATIENT
  Age: 60 Year
  Sex: Male

DRUGS (3)
  1. CUBICIN (DAPTOMYCIN) [Suspect]
     Indication: OSTEOMYELITIS
     Route: 042
  2. VANCOMYCIN [Suspect]
     Indication: OSTEOMYELITIS
  3. CEFEPIME (CEFEPIME) [Suspect]
     Indication: OSTEOMYELITIS

REACTIONS (3)
  - Nephrotic syndrome [None]
  - Renal failure [None]
  - No therapeutic response [None]
